FAERS Safety Report 8063712-7 (Version None)
Quarter: 2012Q1

REPORT INFORMATION
  Report Type: 
  Country: None (occurrence: None)
  Receive Date: 20120123
  Receipt Date: 20120116
  Transmission Date: 20120608
  Serious: Yes (Hospitalization)
  Sender: FDA-Public Use
  Company Number: US-ABBOTT-12P-163-0894533-00

PATIENT
  Sex: Male
  Weight: 71.278 kg

DRUGS (12)
  1. LEVOTHYROXINE SODIUM [Concomitant]
     Indication: HYPOTHYROIDISM
  2. FISH OIL [Concomitant]
     Indication: SUPPLEMENTATION THERAPY
  3. METOPROLOL [Concomitant]
     Indication: PRODUCT USED FOR UNKNOWN INDICATION
  4. LOVAZA [Concomitant]
     Indication: PRODUCT USED FOR UNKNOWN INDICATION
  5. NIASPAN [Suspect]
     Dates: start: 20111216
  6. NIACIN [Suspect]
     Indication: BLOOD CHOLESTEROL INCREASED
     Dates: start: 20111215, end: 20111215
  7. UNKNOWN CLINICAL TRIAL DRUG FOR INFLAMMATION DRUG [Concomitant]
     Indication: INFLAMMATION
  8. BENAZEPRIL HYDROCHLORIDE [Concomitant]
     Indication: HYPERTENSION
  9. AFFIENT [Concomitant]
     Indication: PRODUCT USED FOR UNKNOWN INDICATION
  10. ASPIRIN [Concomitant]
     Indication: TRANSIENT ISCHAEMIC ATTACK
  11. LIPITOR [Concomitant]
     Indication: BLOOD CHOLESTEROL INCREASED
  12. NIASPAN [Suspect]
     Indication: BLOOD CHOLESTEROL INCREASED
     Dates: start: 20111203, end: 20111214

REACTIONS (7)
  - FLUSHING [None]
  - PARAESTHESIA [None]
  - EYE IRRITATION [None]
  - SKIN BURNING SENSATION [None]
  - VISION BLURRED [None]
  - MYOCARDIAL INFARCTION [None]
  - GENERALISED ERYTHEMA [None]
